FAERS Safety Report 13993429 (Version 2)
Quarter: 2017Q3

REPORT INFORMATION
  Report Type: Spontaneous
  Country: US (occurrence: US)
  Receive Date: 20170920
  Receipt Date: 20170928
  Transmission Date: 20171128
  Serious: Yes (Death, Hospitalization, Other)
  Sender: FDA-Public Use
  Company Number: US-ACTELION-A-NJ2017-159660

PATIENT
  Age: 61 Year
  Sex: Male

DRUGS (2)
  1. LETAIRIS [Concomitant]
     Active Substance: AMBRISENTAN
  2. VELETRI [Suspect]
     Active Substance: EPOPROSTENOL
     Indication: PULMONARY HYPERTENSION
     Dosage: 25 NG/KG, PER MIN
     Route: 042

REACTIONS (5)
  - Lung neoplasm malignant [Not Recovered/Not Resolved]
  - Right ventricular failure [Fatal]
  - Dyspnoea [Not Recovered/Not Resolved]
  - Concomitant disease progression [Fatal]
  - Mass [Not Recovered/Not Resolved]
